FAERS Safety Report 15586671 (Version 1)
Quarter: 2018Q4

REPORT INFORMATION
  Report Type: Spontaneous
  Country: US (occurrence: US)
  Receive Date: 20181105
  Receipt Date: 20181105
  Transmission Date: 20190205
  Serious: No
  Sender: FDA-Public Use
  Company Number: None

PATIENT
  Age: 28 Year
  Sex: Female
  Weight: 72 kg

DRUGS (1)
  1. MONTELUKAST [Suspect]
     Active Substance: MONTELUKAST SODIUM
     Indication: HYPERSENSITIVITY
     Dosage: ?          QUANTITY:30 TABLET(S);?
     Route: 048
     Dates: start: 20181016, end: 20181022

REACTIONS (6)
  - Anxiety [None]
  - Depression [None]
  - Aggression [None]
  - Anger [None]
  - Self esteem decreased [None]
  - Obsessive-compulsive disorder [None]

NARRATIVE: CASE EVENT DATE: 20181017
